FAERS Safety Report 20562838 (Version 1)
Quarter: 2022Q1

REPORT INFORMATION
  Report Type: Spontaneous
  Country: US (occurrence: US)
  Receive Date: 20220307
  Receipt Date: 20220307
  Transmission Date: 20220423
  Serious: Yes (Disabling, Other)
  Sender: FDA-Public Use
  Company Number: US-Fresenius Kabi-FK202202654

PATIENT
  Age: 67 Year
  Sex: Male

DRUGS (1)
  1. DEXAMETHASONE [Suspect]
     Active Substance: DEXAMETHASONE
     Indication: COVID-19
     Route: 065

REACTIONS (3)
  - Blindness [Not Recovered/Not Resolved]
  - Product use issue [Recovered/Resolved]
  - Rhinocerebral mucormycosis [Recovered/Resolved with Sequelae]
